FAERS Safety Report 22082135 (Version 1)
Quarter: 2023Q1

REPORT INFORMATION
  Report Type: Spontaneous
  Country: FR (occurrence: FR)
  Receive Date: 20230310
  Receipt Date: 20230310
  Transmission Date: 20230418
  Serious: Yes (Hospitalization)
  Sender: FDA-Public Use
  Company Number: FR-BIOGEN-2023BI01180061

PATIENT
  Age: 32 Year
  Sex: Female

DRUGS (8)
  1. SPINRAZA [Suspect]
     Active Substance: NUSINERSEN
     Indication: Spinal muscular atrophy
     Route: 050
     Dates: start: 20200709, end: 20220513
  2. SPINRAZA [Suspect]
     Active Substance: NUSINERSEN
     Route: 050
     Dates: start: 20200723
  3. SPINRAZA [Suspect]
     Active Substance: NUSINERSEN
     Route: 050
     Dates: start: 20200806
  4. SPINRAZA [Suspect]
     Active Substance: NUSINERSEN
     Route: 050
     Dates: start: 20200925
  5. SPINRAZA [Suspect]
     Active Substance: NUSINERSEN
     Route: 050
     Dates: start: 20210105
  6. SPINRAZA [Suspect]
     Active Substance: NUSINERSEN
     Route: 050
     Dates: start: 20210510
  7. SPINRAZA [Suspect]
     Active Substance: NUSINERSEN
     Route: 050
     Dates: start: 20210913
  8. SPINRAZA [Suspect]
     Active Substance: NUSINERSEN
     Route: 050
     Dates: start: 20220228

REACTIONS (8)
  - Procedural complication [Unknown]
  - Neurological examination abnormal [Unknown]
  - Neck pain [Not Recovered/Not Resolved]
  - Procedural anxiety [Unknown]
  - Arthralgia [Unknown]
  - Feeling hot [Unknown]
  - Post lumbar puncture syndrome [Unknown]
  - Procedural pain [Unknown]

NARRATIVE: CASE EVENT DATE: 20200724
